FAERS Safety Report 10049697 (Version 3)
Quarter: 2015Q2

REPORT INFORMATION
  Report Type: Spontaneous
  Country: IT (occurrence: None)
  Receive Date: 20140328
  Receipt Date: 20150528
  Transmission Date: 20150821
  Serious: Yes (Hospitalization, Disabling)
  Sender: FDA-Public Use
  Company Number: 2014DEPIT00054

PATIENT
  Age: 38 Year
  Sex: Female
  Weight: 60 kg

DRUGS (6)
  1. DEPOCYTE (CYTARABINE) LIPOSOME INJECTABLE SUSPENSION, MG [Suspect]
     Active Substance: CYTARABINE
     Indication: PROPHYLACTIC CHEMOTHERAPY
     Route: 037
     Dates: start: 20090929, end: 20090929
  2. VINCRISTINE (VINCRISTINE) [Suspect]
     Active Substance: VINCRISTINE
     Indication: ACUTE LYMPHOCYTIC LEUKAEMIA
     Route: 042
     Dates: start: 20090823, end: 20090906
  3. GRANULOCYTE COLONY STIMULATING FACTOR (GRANULOXYTRE COLONY STIMULATING FACTOR) [Concomitant]
  4. ASPARAGINASE [Concomitant]
     Active Substance: ASPARAGINASE
     Indication: ACUTE LYMPHOCYTIC LEUKAEMIA
  5. DECADRON [Concomitant]
     Active Substance: DEXAMETHASONE
     Indication: PRODUCT USED FOR UNKNOWN INDICATION
  6. MERCAPTOPURINE (MERCAPTOPYRINE) [Concomitant]
     Active Substance: MERCAPTOPURINE

REACTIONS (4)
  - Hyperbilirubinaemia [None]
  - Polyneuropathy [None]
  - Hepatic failure [None]
  - Blood glucose increased [None]

NARRATIVE: CASE EVENT DATE: 20091006
